FAERS Safety Report 6044799-X (Version None)
Quarter: 2009Q1

REPORT INFORMATION
  Report Type: 
  Country: None (occurrence: None)
  Receive Date: 20090120
  Receipt Date: 20090113
  Transmission Date: 20090719
  Serious: Yes (Hospitalization)
  Sender: FDA-Public Use
  Company Number: VE-ABBOTT-08P-178-0492529-00

PATIENT
  Age: 54 Year
  Sex: Female

DRUGS (2)
  1. HUMIRA [Suspect]
     Indication: RHEUMATOID ARTHRITIS
     Dosage: 4 DOSES
     Route: 058
     Dates: start: 20080901, end: 20081001
  2. METHOTREXATE [Suspect]
     Indication: RHEUMATOID ARTHRITIS
     Route: 048
     Dates: start: 20081118, end: 20081123

REACTIONS (9)
  - CELLULITIS [None]
  - DIARRHOEA [None]
  - DISCOMFORT [None]
  - JAUNDICE [None]
  - LIVER DISORDER [None]
  - MOUTH ULCERATION [None]
  - PANCYTOPENIA [None]
  - PYREXIA [None]
  - RESPIRATORY TRACT INFECTION [None]
